FAERS Safety Report 25048815 (Version 1)
Quarter: 2025Q1

REPORT INFORMATION
  Report Type: Spontaneous
  Country: CN (occurrence: CN)
  Receive Date: 20250307
  Receipt Date: 20250307
  Transmission Date: 20250409
  Serious: Yes (Other)
  Sender: NOVARTIS
  Company Number: CN-002147023-NVSC2025CN036505

PATIENT
  Age: 64 Year
  Sex: Female
  Weight: 55 kg

DRUGS (1)
  1. HYDROCHLOROTHIAZIDE\VALSARTAN [Suspect]
     Active Substance: HYDROCHLOROTHIAZIDE\VALSARTAN
     Indication: Hypertension
     Dosage: 1 DOSAGE FORM, QD (1 TABLET)
     Route: 048
     Dates: start: 20250214, end: 20250216

REACTIONS (3)
  - Photosensitivity reaction [Recovering/Resolving]
  - Erythema [Unknown]
  - Pruritus [Unknown]

NARRATIVE: CASE EVENT DATE: 20250216
